FAERS Safety Report 7783439-6 (Version None)
Quarter: 2011Q3

REPORT INFORMATION
  Report Type: 
  Country: None (occurrence: None)
  Receive Date: 20110928
  Receipt Date: 20110928
  Transmission Date: 20111222
  Serious: Yes (Other)
  Sender: FDA-Public Use
  Company Number: None

PATIENT
  Age: 8 Month
  Sex: Female
  Weight: 8.1646 kg

DRUGS (1)
  1. NICOTINE [Suspect]

REACTIONS (4)
  - ACCIDENTAL EXPOSURE [None]
  - DYSTONIA [None]
  - MUSCLE SPASMS [None]
  - TOXICITY TO VARIOUS AGENTS [None]
